FAERS Safety Report 24724747 (Version 2)
Quarter: 2024Q4

REPORT INFORMATION
  Report Type: Spontaneous
  Country: US (occurrence: US)
  Receive Date: 20241212
  Receipt Date: 20241231
  Transmission Date: 20250115
  Serious: Yes (Hospitalization)
  Sender: TEVA
  Company Number: US-TEVA-VS-3272162

PATIENT
  Age: 46 Year
  Sex: Male

DRUGS (3)
  1. MINOXIDIL [Suspect]
     Active Substance: MINOXIDIL
     Indication: Hypertension
     Route: 048
  2. FINASTERIDE [Suspect]
     Active Substance: FINASTERIDE
     Indication: Prophylaxis
     Route: 065
  3. PHENYLEPHRINE [Concomitant]
     Active Substance: PHENYLEPHRINE
     Indication: Priapism
     Route: 050

REACTIONS (2)
  - Priapism [Recovered/Resolved]
  - Drug ineffective [Unknown]
